FAERS Safety Report 18898848 (Version 1)
Quarter: 2021Q1

REPORT INFORMATION
  Report Type: Spontaneous
  Country: US (occurrence: US)
  Receive Date: 20210215
  Receipt Date: 20210215
  Transmission Date: 20210420
  Serious: No
  Sender: FDA-Public Use
  Company Number: None

PATIENT
  Age: 43 Year
  Sex: Female
  Weight: 66.6 kg

DRUGS (2)
  1. PRENATAL VITAMINS [Concomitant]
     Active Substance: VITAMINS
  2. MONSEL [Suspect]
     Active Substance: FERRIC SUBSULFATE
     Indication: COLPOSCOPY
     Dates: start: 20210215, end: 20210215

REACTIONS (1)
  - Pain [None]

NARRATIVE: CASE EVENT DATE: 20210215
